FAERS Safety Report 4311747-X (Version None)
Quarter: 2004Q1

REPORT INFORMATION
  Report Type: 
  Country: None (occurrence: None)
  Receive Date: 20040304
  Receipt Date: 20040304
  Transmission Date: 20041129
  Serious: Yes (Death)
  Sender: FDA-Public Use
  Company Number: None

PATIENT
  Age: 39 Year
  Sex: Female
  Weight: 87.3 kg

DRUGS (2)
  1. FLUDARABINE ATG 45G 011304 [Suspect]
     Indication: CHEMOTHERAPY
     Dosage: 50 MG QD INTRAVENOUS
     Route: 042
     Dates: start: 20031201, end: 20031204
  2. CYTOXAN [Suspect]
     Indication: STEM CELL TRANSPLANT
     Dosage: 1.72G QD INTRAVENOUS
     Route: 042
     Dates: start: 20031206, end: 20031207

REACTIONS (3)
  - CORD BLOOD TRANSPLANT THERAPY [None]
  - LEUKAEMIA RECURRENT [None]
  - TRANSPLANT REJECTION [None]
